FAERS Safety Report 9457252 (Version 2)
Quarter: 2013Q3

REPORT INFORMATION
  Report Type: Spontaneous
  Country: GB (occurrence: None)
  Receive Date: 20130812
  Receipt Date: 20130826
  Transmission Date: 20140515
  Serious: Yes (Death, Hospitalization, Other)
  Sender: FDA-Public Use
  Company Number: 2013227448

PATIENT
  Age: 86 Year
  Sex: Male
  Weight: 62 kg

DRUGS (1)
  1. DALTEPARIN SODIUM (DALTEPARIN SODIUM) UNKNOWN [Suspect]
     Indication: PULMONARY EMBOLISM
     Route: 058

REACTIONS (5)
  - Retroperitoneal haemorrhage [None]
  - Abdominal pain [None]
  - Hypotension [None]
  - Metabolic acidosis [None]
  - Intestinal dilatation [None]
